FAERS Safety Report 12958382 (Version 1)
Quarter: 2016Q4

REPORT INFORMATION
  Report Type: Spontaneous
  Country: AU (occurrence: AU)
  Receive Date: 20161121
  Receipt Date: 20161121
  Transmission Date: 20170207
  Serious: Yes (Hospitalization)
  Sender: FDA-Public Use
  Company Number: AU-009507513-1611AUS007864

PATIENT
  Age: 71 Year
  Sex: Male

DRUGS (3)
  1. RIBAVIRIN. [Suspect]
     Active Substance: RIBAVIRIN
     Dosage: UNK
     Route: 048
  2. VIEKIRA PAK [Suspect]
     Active Substance: DASABUVIR\OMBITASVIR\PARITAPREVIR\RITONAVIR
  3. LACTULOSE. [Concomitant]
     Active Substance: LACTULOSE

REACTIONS (5)
  - Diarrhoea [Recovered/Resolved]
  - Malaise [Unknown]
  - Haemoglobin decreased [Unknown]
  - Hepatic encephalopathy [Unknown]
  - Constipation [Unknown]

NARRATIVE: CASE EVENT DATE: 20160705
